FAERS Safety Report 8249522-6 (Version None)
Quarter: 2012Q1

REPORT INFORMATION
  Report Type: 
  Country: None (occurrence: None)
  Receive Date: 20120316
  Receipt Date: 20110110
  Transmission Date: 20120608
  Serious: Yes (Other)
  Sender: FDA-Public Use
  Company Number: PHHY2011US01913

PATIENT
  Age: 66 Year
  Sex: Female

DRUGS (1)
  1. TEKTURNA [Suspect]
     Indication: HYPERTENSION
     Dosage: 150 MG, QD, ORAL; 300 MG, QD, ORAL
     Route: 048

REACTIONS (3)
  - SWELLING FACE [None]
  - ANGIOEDEMA [None]
  - LIP SWELLING [None]
